FAERS Safety Report 6967879-0 (Version None)
Quarter: 2010Q3

REPORT INFORMATION
  Report Type: 
  Country: None (occurrence: None)
  Receive Date: 20100907
  Receipt Date: 20100506
  Transmission Date: 20110219
  Serious: No
  Sender: FDA-Public Use
  Company Number: A0859653A

PATIENT
  Age: 62 Year
  Sex: Male

DRUGS (2)
  1. REQUIP [Suspect]
     Indication: PARKINSON'S DISEASE
     Route: 048
  2. VIAGRA [Concomitant]
     Indication: ERECTILE DYSFUNCTION
     Dosage: 25MG UNKNOWN
     Route: 048
     Dates: start: 19970101

REACTIONS (2)
  - EXCESSIVE SEXUAL FANTASIES [None]
  - LIBIDO INCREASED [None]
